FAERS Safety Report 7080396-5 (Version None)
Quarter: 2010Q4

REPORT INFORMATION
  Report Type: 
  Country: None (occurrence: None)
  Receive Date: 20101103
  Receipt Date: 20100324
  Transmission Date: 20110411
  Serious: Yes (Hospitalization, Other)
  Sender: FDA-Public Use
  Company Number: US-BAYER-201010629NA

PATIENT
  Age: 23 Year
  Sex: Female
  Weight: 84 kg

DRUGS (21)
  1. YAZ [Suspect]
     Indication: ORAL CONTRACEPTION
     Route: 048
     Dates: start: 20080901, end: 20090101
  2. ANTIBIOTICS [Concomitant]
     Dates: start: 20000101, end: 20090101
  3. MOTRIN [Concomitant]
     Dates: start: 20070901
  4. MOTRIN [Concomitant]
     Dates: start: 20081001
  5. MOTRIN [Concomitant]
     Dates: start: 20090201
  6. OXYCODONE HCL [Concomitant]
     Indication: PAIN
     Dates: start: 20090201
  7. ALLEGRA [Concomitant]
     Indication: HYPERSENSITIVITY
  8. MIDAZOLAM HCL [Concomitant]
     Indication: ANXIETY
  9. MIRALAX [Concomitant]
  10. OXYCODONE HCL [Concomitant]
  11. PERCOCET [Concomitant]
     Route: 048
     Dates: start: 20090113
  12. OXYCONTIN [Concomitant]
     Route: 048
     Dates: start: 20081101, end: 20091001
  13. OXYCONTIN [Concomitant]
     Route: 048
     Dates: start: 20090105
  14. METHADONE [Concomitant]
     Dates: start: 20080201
  15. METHADONE [Concomitant]
     Dates: start: 20080601
  16. METHADONE [Concomitant]
     Dates: start: 20080901
  17. TRAMADOL HCL [Concomitant]
     Dates: start: 20091218
  18. DURAGESIC-100 [Concomitant]
     Dates: start: 20080801, end: 20081001
  19. VALIUM [Concomitant]
     Dates: start: 20080201, end: 20080301
  20. VALIUM [Concomitant]
     Dates: start: 20080601
  21. VALIUM [Concomitant]
     Dates: start: 20091101

REACTIONS (11)
  - ABDOMINAL PAIN [None]
  - ABDOMINAL PAIN UPPER [None]
  - AMPULLA OF VATER STENOSIS [None]
  - BILIARY COLIC [None]
  - CHOLELITHIASIS [None]
  - DECREASED APPETITE [None]
  - GALLBLADDER DISORDER [None]
  - MURPHY'S SIGN POSITIVE [None]
  - NAUSEA [None]
  - UNEVALUABLE EVENT [None]
  - VOMITING [None]
